FAERS Safety Report 7867351-X (Version None)
Quarter: 2011Q4

REPORT INFORMATION
  Report Type: 
  Country: None (occurrence: None)
  Receive Date: 20111028
  Receipt Date: 20111019
  Transmission Date: 20120403
  Serious: Yes (Hospitalization)
  Sender: FDA-Public Use
  Company Number: US-US-EMD SERONO, INC.-7087866

PATIENT
  Sex: Female
  Weight: 95 kg

DRUGS (12)
  1. UNSPECIFIED ANALGESIC [Concomitant]
     Indication: PREMEDICATION
  2. NASONEX [Concomitant]
     Dates: start: 20081001
  3. PROAIR HFA [Concomitant]
     Indication: DYSPNOEA
     Dates: start: 20090609
  4. TEMAZEPAM [Concomitant]
     Route: 048
  5. VITAMIN D [Concomitant]
     Route: 048
     Dates: start: 20100618
  6. CLONAZEPAM [Concomitant]
     Indication: ANXIETY
     Route: 048
  7. IBUPROFEN [Concomitant]
     Route: 048
     Dates: start: 20090323
  8. CALCIUM CARBONATE [Concomitant]
     Route: 048
     Dates: start: 20100112
  9. RANITIDINE [Concomitant]
     Route: 048
     Dates: start: 20110524
  10. REBIF [Suspect]
     Indication: MULTIPLE SCLEROSIS
     Route: 058
     Dates: start: 20090324
  11. ASMANEX TWISTHALER [Concomitant]
     Dates: start: 20081002
  12. SPIRONLACTONE [Concomitant]
     Route: 048
     Dates: start: 20080213

REACTIONS (20)
  - INFLUENZA LIKE ILLNESS [None]
  - TENDONITIS [None]
  - SENSORY LOSS [None]
  - MICTURITION URGENCY [None]
  - FATIGUE [None]
  - MIGRAINE [None]
  - NECK PAIN [None]
  - CONSTIPATION [None]
  - GASTROOESOPHAGEAL REFLUX DISEASE [None]
  - MYOSITIS [None]
  - INJECTION SITE ERYTHEMA [None]
  - INJECTION SITE NODULE [None]
  - OCCIPITAL NEURALGIA [None]
  - HYPOAESTHESIA [None]
  - INJECTION SITE PAIN [None]
  - BLOOD GLUCOSE INCREASED [None]
  - MULTIPLE SCLEROSIS RELAPSE [None]
  - HYPERTENSION [None]
  - BACK PAIN [None]
  - INAPPROPRIATE SCHEDULE OF DRUG ADMINISTRATION [None]
